FAERS Safety Report 24642280 (Version 4)
Quarter: 2025Q3

REPORT INFORMATION
  Report Type: Report from Study
  Country: US (occurrence: US)
  Receive Date: 20241120
  Receipt Date: 20250802
  Transmission Date: 20251021
  Serious: Yes (Other)
  Sender: ALEXION PHARMACEUTICALS
  Company Number: US-AstraZeneca-CH-00748670A

PATIENT
  Sex: Female

DRUGS (1)
  1. SOLIRIS [Suspect]
     Active Substance: ECULIZUMAB
     Route: 065

REACTIONS (6)
  - Meningitis [Unknown]
  - Back pain [Unknown]
  - Headache [Unknown]
  - Diplopia [Unknown]
  - Rash [Unknown]
  - Influenza [Unknown]
